FAERS Safety Report 21919449 (Version 2)
Quarter: 2023Q1

REPORT INFORMATION
  Report Type: Spontaneous
  Country: US (occurrence: None)
  Receive Date: 20230127
  Receipt Date: 20230302
  Transmission Date: 20230418
  Serious: No
  Sender: FDA-Public Use
  Company Number: 2023A006338

PATIENT

DRUGS (2)
  1. TEZSPIRE [Suspect]
     Active Substance: TEZEPELUMAB-EKKO
     Indication: Asthma
     Route: 058
     Dates: start: 20221214
  2. FASENRA [Suspect]
     Active Substance: BENRALIZUMAB
     Indication: Asthma
     Route: 058
     Dates: start: 202202, end: 20221214

REACTIONS (6)
  - Blood pressure increased [Unknown]
  - Chest discomfort [Recovered/Resolved]
  - Aphonia [Unknown]
  - Feeling abnormal [Unknown]
  - Drug ineffective [Unknown]
  - Pulmonary function test decreased [Unknown]
